FAERS Safety Report 18685341 (Version 1)
Quarter: 2020Q4

REPORT INFORMATION
  Report Type: Spontaneous
  Country: US (occurrence: US)
  Receive Date: 20201230
  Receipt Date: 20201230
  Transmission Date: 20210114
  Serious: No
  Sender: FDA-Public Use
  Company Number: US-SUNOVION-2020SUN003851

PATIENT
  Sex: Female

DRUGS (3)
  1. VRAYLAR [Concomitant]
     Active Substance: CARIPRAZINE
  2. LATUDA [Suspect]
     Active Substance: LURASIDONE HYDROCHLORIDE
     Dosage: UNK
     Route: 048
  3. ABILIFY [Concomitant]
     Active Substance: ARIPIPRAZOLE

REACTIONS (2)
  - Anxiety [Unknown]
  - Insomnia [Unknown]
